FAERS Safety Report 5697842-1 (Version None)
Quarter: 2008Q2

REPORT INFORMATION
  Report Type: 
  Country: None (occurrence: None)
  Receive Date: 20080408
  Receipt Date: 20080331
  Transmission Date: 20081010
  Serious: Yes (Disabling)
  Sender: FDA-Public Use
  Company Number: FR-ALLERGAN-0803949US

PATIENT
  Sex: Male

DRUGS (1)
  1. BOTOX [Suspect]
     Indication: STRABISMUS CONGENITAL
     Dosage: 1.25 IU, SINGLE
     Route: 030

REACTIONS (1)
  - MYDRIASIS [None]
